FAERS Safety Report 16904715 (Version 1)
Quarter: 2019Q4

REPORT INFORMATION
  Report Type: Spontaneous
  Country: GB (occurrence: GB)
  Receive Date: 20191010
  Receipt Date: 20191010
  Transmission Date: 20200122
  Serious: Yes (Hospitalization)
  Sender: FDA-Public Use
  Company Number: GB-MYLANLABS-2019M1094787

PATIENT
  Age: 49 Year
  Sex: Male
  Weight: 120 kg

DRUGS (3)
  1. IBUPROFEN. [Concomitant]
     Active Substance: IBUPROFEN
     Dosage: UNK UNK, PRN
  2. GABAPENTIN. [Suspect]
     Active Substance: GABAPENTIN
     Indication: EHLERS-DANLOS SYNDROME
     Dosage: 1200 MILLIGRAM
     Route: 048
     Dates: end: 20160915
  3. GABAPENTIN. [Suspect]
     Active Substance: GABAPENTIN
     Dosage: 900 MILLIGRAM
     Route: 048
     Dates: start: 20140515

REACTIONS (17)
  - Headache [Recovered/Resolved]
  - Abdominal pain [Not Recovered/Not Resolved]
  - Thinking abnormal [Recovered/Resolved]
  - Feeling abnormal [Recovered/Resolved]
  - Increased appetite [Not Recovered/Not Resolved]
  - Muscle spasms [Recovered/Resolved with Sequelae]
  - Abnormal weight gain [Not Recovered/Not Resolved]
  - Anxiety [Recovered/Resolved]
  - Constipation [Not Recovered/Not Resolved]
  - Dizziness [Recovered/Resolved]
  - Gait disturbance [Recovered/Resolved with Sequelae]
  - Abnormal faeces [Unknown]
  - Memory impairment [Recovered/Resolved]
  - Neck pain [Unknown]
  - Loss of proprioception [Recovered/Resolved with Sequelae]
  - Vision blurred [Recovered/Resolved]
  - Tremor [Recovered/Resolved with Sequelae]

NARRATIVE: CASE EVENT DATE: 20140515
